FAERS Safety Report 23546384 (Version 2)
Quarter: 2025Q3

REPORT INFORMATION
  Report Type: Report from Study
  Country: US (occurrence: US)
  Receive Date: 20240220
  Receipt Date: 20250829
  Transmission Date: 20251020
  Serious: No
  Sender: ALEXION PHARMACEUTICALS
  Company Number: US-ALXN-202402GLO001150US

PATIENT
  Age: 24 Year
  Sex: Female

DRUGS (8)
  1. KANUMA [Suspect]
     Active Substance: SEBELIPASE ALFA
     Indication: Lysosomal acid lipase deficiency
     Dosage: 1 MILLIGRAM/KILOGRAM, Q2W
     Dates: start: 20131009, end: 20150918
  2. KANUMA [Suspect]
     Active Substance: SEBELIPASE ALFA
     Dosage: 3 MILLIGRAM/KILOGRAM, Q2W
     Dates: start: 20151002, end: 201612
  3. KANUMA [Suspect]
     Active Substance: SEBELIPASE ALFA
     Dosage: UNK UNK, Q2W
     Dates: start: 201612, end: 201705
  4. KANUMA [Suspect]
     Active Substance: SEBELIPASE ALFA
     Dosage: 3 MILLIGRAM/KILOGRAM, Q2W
     Dates: start: 201705, end: 202304
  5. KANUMA [Suspect]
     Active Substance: SEBELIPASE ALFA
     Dosage: UNK UNK, Q2W
     Dates: start: 20240207
  6. LIPITOR [Concomitant]
     Active Substance: ATORVASTATIN CALCIUM
     Indication: Dyslipidaemia
     Dosage: 20 MILLIGRAM, QD
  7. LIPITOR [Concomitant]
     Active Substance: ATORVASTATIN CALCIUM
     Indication: Low density lipoprotein increased
     Dosage: 10 MILLIGRAM, QD
  8. LIPITOR [Concomitant]
     Active Substance: ATORVASTATIN CALCIUM
     Dosage: 20 MILLIGRAM, QD

REACTIONS (1)
  - Infusion related reaction [Recovered/Resolved]

NARRATIVE: CASE EVENT DATE: 20240208
